FAERS Safety Report 5011208-9 (Version None)
Quarter: 2006Q2

REPORT INFORMATION
  Report Type: 
  Country: None (occurrence: None)
  Receive Date: 20060523
  Receipt Date: 20060509
  Transmission Date: 20061013
  Serious: Yes (Hospitalization, Disabling)
  Sender: FDA-Public Use
  Company Number: 408610

PATIENT
  Age: 29 Year
  Sex: Male
  Weight: 77.1 kg

DRUGS (3)
  1. ACCUTANE [Suspect]
     Indication: ACNE
     Dosage: ORAL
     Route: 048
     Dates: start: 19880415, end: 19881015
  2. ACCUTANE [Suspect]
     Indication: SKIN INFLAMMATION
     Dosage: ORAL
     Route: 048
     Dates: start: 19880415, end: 19881015
  3. MINOXIDIL [Concomitant]

REACTIONS (51)
  - ACNE [None]
  - ALOPECIA [None]
  - ANGINA PECTORIS [None]
  - ARTHRITIS [None]
  - ASPARTATE AMINOTRANSFERASE INCREASED [None]
  - ASTHENIA [None]
  - BACK PAIN [None]
  - BLOOD PHOSPHORUS INCREASED [None]
  - CHEST PAIN [None]
  - COLITIS ULCERATIVE [None]
  - CONDITION AGGRAVATED [None]
  - CONSTIPATION [None]
  - DEPRESSION [None]
  - DYSPLASTIC NAEVUS SYNDROME [None]
  - DYSPNOEA [None]
  - ELECTROCARDIOGRAM ABNORMAL [None]
  - FATIGUE [None]
  - GASTROINTESTINAL DISORDER [None]
  - HAEMATOCRIT DECREASED [None]
  - HAEMOGLOBIN DECREASED [None]
  - HEADACHE [None]
  - HEPATOTOXICITY [None]
  - HERPES ZOSTER [None]
  - IMPAIRED WORK ABILITY [None]
  - INFLAMMATORY BOWEL DISEASE [None]
  - INSOMNIA [None]
  - INTERVERTEBRAL DISC DEGENERATION [None]
  - INTESTINAL HAEMORRHAGE [None]
  - JOINT STIFFNESS [None]
  - LYMPHOCYTE COUNT DECREASED [None]
  - MEAN CELL HAEMOGLOBIN INCREASED [None]
  - MEAN CELL VOLUME INCREASED [None]
  - MELANOCYTIC NAEVUS [None]
  - MOUTH ULCERATION [None]
  - MULTI-ORGAN DISORDER [None]
  - MUSCLE SPASMS [None]
  - MUSCULOSKELETAL DISORDER [None]
  - MYELOPATHY [None]
  - NECK PAIN [None]
  - NEUTROPHIL COUNT INCREASED [None]
  - PAIN IN EXTREMITY [None]
  - PALPITATIONS [None]
  - PLATELET COUNT INCREASED [None]
  - RADICULITIS CERVICAL [None]
  - RECTAL HAEMORRHAGE [None]
  - SEBORRHOEIC KERATOSIS [None]
  - SHOULDER PAIN [None]
  - SOMNOLENCE [None]
  - SPINAL CORD COMPRESSION [None]
  - SPINAL OSTEOARTHRITIS [None]
  - WHITE BLOOD CELL COUNT INCREASED [None]
